FAERS Safety Report 7215126-7 (Version None)
Quarter: 2011Q1

REPORT INFORMATION
  Report Type: 
  Country: None (occurrence: None)
  Receive Date: 20110107
  Receipt Date: 20100901
  Transmission Date: 20110831
  Serious: No
  Sender: FDA-Public Use
  Company Number: A0878936A

PATIENT
  Age: 79 Year
  Sex: Female

DRUGS (5)
  1. ALEVE [Concomitant]
  2. DIOVAN [Concomitant]
     Dosage: 150MG PER DAY
  3. METOPROLOL [Concomitant]
  4. CITALOPRAM [Concomitant]
  5. LOVAZA [Suspect]
     Dosage: 1G PER DAY
     Route: 048
     Dates: start: 20100828, end: 20100830

REACTIONS (1)
  - URTICARIA [None]
